FAERS Safety Report 17055444 (Version 1)
Quarter: 2019Q4

REPORT INFORMATION
  Report Type: Report from Study
  Country: US (occurrence: US)
  Receive Date: 20191120
  Receipt Date: 20191120
  Transmission Date: 20200122
  Serious: Yes (Other)
  Sender: FDA-Public Use
  Company Number: US-GILEAD-2019-0438609

PATIENT
  Age: 34 Year
  Sex: Female

DRUGS (1)
  1. AZTREONAM LYSINE [Suspect]
     Active Substance: AZTREONAM LYSINE
     Indication: CYSTIC FIBROSIS
     Dosage: 75 MG, TID 14 DAY ON AND 14 DAYS OFF
     Route: 055
     Dates: start: 20180508

REACTIONS (2)
  - Condition aggravated [Recovering/Resolving]
  - Forced expiratory volume abnormal [Not Recovered/Not Resolved]

NARRATIVE: CASE EVENT DATE: 201910
